FAERS Safety Report 8379352-6 (Version None)
Quarter: 2012Q2

REPORT INFORMATION
  Report Type: 
  Country: None (occurrence: None)
  Receive Date: 20120523
  Receipt Date: 20120522
  Transmission Date: 20120825
  Serious: Yes (Death)
  Sender: FDA-Public Use
  Company Number: PHFR2012GB002742

PATIENT
  Sex: Female

DRUGS (3)
  1. CLOZARIL [Suspect]
     Indication: SCHIZOPHRENIA
     Dosage: 450 UKN, UNK
     Route: 048
     Dates: start: 20080708
  2. DIAZEPAM [Concomitant]
     Dosage: 10 UKN, UNK
  3. AMISULPRIDE [Concomitant]
     Dosage: 200 UKN, UNK

REACTIONS (4)
  - NEOPLASM MALIGNANT [None]
  - BONE NEOPLASM MALIGNANT [None]
  - LUNG NEOPLASM MALIGNANT [None]
  - HEPATIC NEOPLASM MALIGNANT [None]
